APPROVED DRUG PRODUCT: LOSARTAN POTASSIUM
Active Ingredient: LOSARTAN POTASSIUM
Strength: 100MG
Dosage Form/Route: TABLET;ORAL
Application: A091541 | Product #003 | TE Code: AB
Applicant: MICRO LABS LTD
Approved: Sep 24, 2012 | RLD: No | RS: No | Type: RX